FAERS Safety Report 24235789 (Version 1)
Quarter: 2024Q3

REPORT INFORMATION
  Report Type: Spontaneous
  Country: IT (occurrence: IT)
  Receive Date: 20240822
  Receipt Date: 20240822
  Transmission Date: 20241017
  Serious: Yes (Other)
  Sender: MERCK
  Company Number: None

PATIENT
  Age: 73 Year
  Sex: Male
  Weight: 75 kg

DRUGS (2)
  1. PEMBROLIZUMAB [Suspect]
     Active Substance: PEMBROLIZUMAB
     Indication: Lung neoplasm
     Dosage: 200 MG PER IV DRUG NOT SUSPENDED
     Route: 042
     Dates: start: 20200617, end: 20201203
  2. ALIMTA [Suspect]
     Active Substance: PEMETREXED DISODIUM
     Indication: Lung neoplasm
     Dosage: 700 MG EVERY 21 DAYS IV. DRUG SUSPENDED, NO IMPROVEMENT AFTER DRUG DISCONTINUATION, DRUG NOT RESTART
     Route: 042
     Dates: start: 20200617, end: 20200910

REACTIONS (4)
  - Malaise [Recovered/Resolved]
  - Platelet count decreased [Recovered/Resolved]
  - Renal failure [Recovered/Resolved]
  - Toxicity to various agents [Recovered/Resolved]

NARRATIVE: CASE EVENT DATE: 20200918
